FAERS Safety Report 9996904 (Version 1)
Quarter: 2014Q1

REPORT INFORMATION
  Report Type: Spontaneous
  Country: US (occurrence: US)
  Receive Date: 20140311
  Receipt Date: 20140311
  Transmission Date: 20141002
  Serious: No
  Sender: FDA-Public Use
  Company Number: US-GLAXOSMITHKLINE-A1010920A

PATIENT
  Age: 30 Year
  Sex: Female

DRUGS (1)
  1. NICORETTE MINT OTC 2MG [Suspect]
     Indication: EX-TOBACCO USER
     Dates: start: 20130201, end: 20130204

REACTIONS (2)
  - Gingival ulceration [Not Recovered/Not Resolved]
  - Cheilitis [Not Recovered/Not Resolved]
